FAERS Safety Report 15704176 (Version 1)
Quarter: 2018Q4

REPORT INFORMATION
  Report Type: Spontaneous
  Country: US (occurrence: US)
  Receive Date: 20181127
  Receipt Date: 20181127
  Transmission Date: 20190205
  Serious: Yes (Life-Threatening, Hospitalization)
  Sender: FDA-Public Use
  Company Number: None

PATIENT
  Age: 54 Year
  Sex: Female
  Weight: 68.04 kg

DRUGS (10)
  1. OMEPRAZOLE 20MG [Concomitant]
     Active Substance: OMEPRAZOLE
  2. VIT B-12  500MCG [Concomitant]
  3. FLUDROCORTZONE 0.1MG [Concomitant]
  4. GABAPENTIN 300 MG [Suspect]
     Active Substance: GABAPENTIN
  5. PROBRIOTIC [Concomitant]
  6. RECLAST [Suspect]
     Active Substance: ZOLEDRONIC ACID
     Indication: OSTEOPENIA
     Dosage: ?          OTHER ROUTE:INJECTION - IV?
     Dates: start: 20180723
  7. VIT D2 50,000 UNITS [Concomitant]
  8. LEVOTHYROXINE 0.1MG [Concomitant]
  9. RECLAST [Suspect]
     Active Substance: ZOLEDRONIC ACID
     Indication: OSTEOPOROSIS
     Dosage: ?          OTHER ROUTE:INJECTION - IV?
     Dates: start: 20180723
  10. HYDROCORTIZONE 5MG [Concomitant]

REACTIONS (3)
  - Chest pain [None]
  - Adverse drug reaction [None]
  - Dyspnoea [None]

NARRATIVE: CASE EVENT DATE: 20180723
